FAERS Safety Report 19954539 (Version 2)
Quarter: 2021Q4

REPORT INFORMATION
  Report Type: Report from Study
  Country: BR (occurrence: BR)
  Receive Date: 20211013
  Receipt Date: 20211025
  Transmission Date: 20220303
  Serious: Yes (Hospitalization, Other)
  Sender: FDA-Public Use
  Company Number: BR-TAKEDA-2019TUS031310

PATIENT
  Age: 40 Year
  Sex: Female
  Weight: 58 kg

DRUGS (13)
  1. VEDOLIZUMAB [Suspect]
     Active Substance: VEDOLIZUMAB
     Indication: Crohn^s disease
     Dosage: 300 MILLIGRAM
     Route: 042
     Dates: start: 20190503
  2. VEDOLIZUMAB [Suspect]
     Active Substance: VEDOLIZUMAB
     Dosage: 300 MILLIGRAM, Q6WEEKS
     Route: 042
     Dates: start: 201909
  3. IRON POLYMALTOSE [Suspect]
     Active Substance: IRON POLYMALTOSE
     Indication: Anaemia
     Dosage: UNK
     Route: 042
     Dates: start: 20190503, end: 201906
  4. IRON POLYMALTOSE [Suspect]
     Active Substance: IRON POLYMALTOSE
     Indication: Anaemia
     Dosage: 100 MILLIGRAM, TID
     Route: 048
     Dates: start: 2019, end: 201906
  5. IRON POLYMALTOSE [Suspect]
     Active Substance: IRON POLYMALTOSE
     Indication: Anaemia
     Dosage: 100 MILLIGRAM, TID
     Route: 048
     Dates: start: 2019, end: 201906
  6. VENOFER [Suspect]
     Active Substance: IRON SUCROSE
     Indication: Anaemia
     Dosage: 100 MILLIGRAM
     Route: 042
     Dates: start: 20190503, end: 201906
  7. EXJADE [Suspect]
     Active Substance: DEFERASIROX
     Indication: Liver iron concentration increased
     Dosage: 500 MILLIGRAM, QD
     Route: 065
     Dates: start: 201906, end: 201909
  8. EXJADE [Suspect]
     Active Substance: DEFERASIROX
     Dosage: 500 MILLIGRAM, QD
     Route: 065
  9. EUTHYROX [Concomitant]
     Active Substance: LEVOTHYROXINE SODIUM
     Indication: Thyroid disorder
     Dosage: UNK
  10. VITAMIN C [Concomitant]
     Active Substance: ASCORBIC ACID
     Indication: Metabolic surgery
     Dosage: UNK
  11. CREON [Concomitant]
     Active Substance: PANCRELIPASE AMYLASE\PANCRELIPASE LIPASE\PANCRELIPASE PROTEASE
     Dosage: 2500 MILLIGRAM
  12. CARBOHYDRATES\FATTY ACIDS\MINERALS\PROTEIN\VITAMINS [Concomitant]
     Active Substance: CARBOHYDRATES\FATTY ACIDS\MINERALS\PROTEIN\VITAMINS
     Indication: Crohn^s disease
     Dosage: UNK
     Dates: start: 2019
  13. BUPROPION [Concomitant]
     Active Substance: BUPROPION
     Indication: Anxiety
     Dosage: 150 MILLIGRAM
     Route: 048

REACTIONS (22)
  - Crohn^s disease [Recovered/Resolved]
  - Biliary colic [Recovered/Resolved]
  - Asthenia [Recovered/Resolved]
  - Abdominal pain [Recovered/Resolved]
  - Dental caries [Not Recovered/Not Resolved]
  - Intestinal obstruction [Not Recovered/Not Resolved]
  - Aphthous ulcer [Recovered/Resolved]
  - Alopecia [Recovered/Resolved]
  - Onychoclasis [Recovered/Resolved]
  - Diarrhoea [Recovered/Resolved]
  - Liver iron concentration increased [Recovering/Resolving]
  - Serum ferritin increased [Not Recovered/Not Resolved]
  - Malnutrition [Unknown]
  - Flatulence [Recovered/Resolved]
  - Influenza like illness [Recovered/Resolved]
  - Dizziness [Recovered/Resolved]
  - Gastrointestinal inflammation [Unknown]
  - Hyperaesthesia teeth [Not Recovered/Not Resolved]
  - Nausea [Recovered/Resolved]
  - Weight increased [Recovered/Resolved with Sequelae]
  - Therapeutic reaction time decreased [Unknown]
  - Off label use [Unknown]

NARRATIVE: CASE EVENT DATE: 20190101
